FAERS Safety Report 14812578 (Version 1)
Quarter: 2018Q2

REPORT INFORMATION
  Report Type: Report from Study
  Country: None (occurrence: IT)
  Receive Date: 20180425
  Receipt Date: 20180425
  Transmission Date: 20180711
  Serious: Yes (Disabling)
  Sender: FDA-Public Use
  Company Number: IT-ABBVIE-18K-083-2330122-00

PATIENT
  Age: 71 Year
  Sex: Female

DRUGS (1)
  1. DUODOPA [Suspect]
     Active Substance: CARBIDOPA\LEVODOPA
     Indication: PARKINSON^S DISEASE
     Dosage: MD 4+3?CR 2.4?ED 2.7
     Route: 050
     Dates: start: 20180326

REACTIONS (3)
  - Dyskinesia [Unknown]
  - General physical health deterioration [Unknown]
  - Depression [Unknown]

NARRATIVE: CASE EVENT DATE: 20180419
